FAERS Safety Report 19505238 (Version 1)
Quarter: 2021Q3

REPORT INFORMATION
  Report Type: Report from Study
  Country: None (occurrence: JP)
  Receive Date: 20210707
  Receipt Date: 20210707
  Transmission Date: 20211014
  Serious: Yes (Other)
  Sender: FDA-Public Use
  Company Number: JP-ABBVIE-19K-087-3206942-00

PATIENT
  Age: 78 Year
  Sex: Female
  Weight: 40 kg

DRUGS (14)
  1. DUODOPA [Suspect]
     Active Substance: CARBIDOPA\LEVODOPA
     Dosage: MD : 11 ML?CD : 3.0 ML/HR X 16 HRS?ED : 1 ML/UNIT X 1 TIMES
     Route: 050
     Dates: start: 20191129, end: 20191219
  2. DIAZEPAM. [Concomitant]
     Active Substance: DIAZEPAM
     Indication: PRODUCT USED FOR UNKNOWN INDICATION
     Route: 048
  3. DUODOPA [Suspect]
     Active Substance: CARBIDOPA\LEVODOPA
     Dosage: MD : 3 ML?CD : 2.8 ML/HR X 16 HRS?ED : 1 ML/UNIT X 1 TIMES
     Route: 050
     Dates: start: 20191220
  4. TIAPRIDE HYDROCHLORIDE [Concomitant]
     Active Substance: TIAPRIDE HYDROCHLORIDE
     Indication: PARKINSON^S DISEASE
     Route: 048
     Dates: start: 20191022
  5. NIFEDIPINE. [Concomitant]
     Active Substance: NIFEDIPINE
     Indication: PRODUCT USED FOR UNKNOWN INDICATION
     Route: 048
  6. SUVOREXANT. [Concomitant]
     Active Substance: SUVOREXANT
     Indication: PRODUCT USED FOR UNKNOWN INDICATION
     Route: 048
  7. MAGNESIUM OXIDE. [Concomitant]
     Active Substance: MAGNESIUM OXIDE
     Indication: PRODUCT USED FOR UNKNOWN INDICATION
     Route: 048
  8. CLOSTRIDIUM BUTYRICUM [Concomitant]
     Active Substance: CLOSTRIDIUM BUTYRICUM SPORES STRAIN M-55
     Indication: PROPHYLAXIS
     Route: 048
  9. LEVOTHYROXINE SODIUM HYDRATE [Concomitant]
     Active Substance: LEVOTHYROXINE SODIUM
     Indication: PRODUCT USED FOR UNKNOWN INDICATION
     Route: 048
  10. DUODOPA [Suspect]
     Active Substance: CARBIDOPA\LEVODOPA
     Dosage: MD : 11 ML?CD : 3.4 ML/HR X 16 HRS?ED : 1 ML/UNIT X 1 TIMES
     Route: 050
     Dates: start: 20190929, end: 20190930
  11. TEPRENONE [Concomitant]
     Active Substance: TEPRENONE
     Indication: PROPHYLAXIS
     Route: 048
  12. MIRABEGRON [Concomitant]
     Active Substance: MIRABEGRON
     Indication: PRODUCT USED FOR UNKNOWN INDICATION
     Route: 048
  13. DUODOPA [Suspect]
     Active Substance: CARBIDOPA\LEVODOPA
     Indication: PARKINSON^S DISEASE
     Dosage: MD : 11 ML?CD : 3.2 ML/HR X 16 HRS?ED : 1 ML/UNIT X 1 TIMES
     Route: 050
     Dates: start: 20190924, end: 20190928
  14. DUODOPA [Suspect]
     Active Substance: CARBIDOPA\LEVODOPA
     Dosage: MD : 11 ML?CD : 3.2 ML/HR X 16 HRS?ED : 1 ML/UNIT X 1 TIMES
     Route: 050
     Dates: start: 20191001, end: 20191128

REACTIONS (6)
  - Angle closure glaucoma [Unknown]
  - Aspiration [Unknown]
  - On and off phenomenon [Unknown]
  - Dyskinesia [Unknown]
  - Cataract [Unknown]
  - Wrong technique in device usage process [Unknown]
